FAERS Safety Report 5028532-6 (Version None)
Quarter: 2006Q2

REPORT INFORMATION
  Report Type: 
  Country: None (occurrence: None)
  Receive Date: 20060617
  Receipt Date: 20060518
  Transmission Date: 20061013
  Serious: Yes (Other)
  Sender: FDA-Public Use
  Company Number: JP-MERCK-0605USA04283

PATIENT
  Age: 56 Year
  Sex: Female

DRUGS (5)
  1. TIMOPTIC [Suspect]
     Route: 047
     Dates: start: 20041026, end: 20050520
  2. LEVOFLOXACIN [Concomitant]
     Route: 047
     Dates: start: 20040908, end: 20050520
  3. FLUOROMETHOLONE [Concomitant]
     Route: 047
     Dates: start: 20040908, end: 20050520
  4. BRINZOLAMIDE [Concomitant]
     Route: 047
     Dates: start: 20041026, end: 20050520
  5. HYALURONATE SODIUM [Concomitant]
     Route: 047
     Dates: start: 20041129, end: 20050520

REACTIONS (12)
  - ASTHENIA [None]
  - CATARACT NUCLEAR [None]
  - CATARACT SUBCAPSULAR [None]
  - HYPERSOMNIA [None]
  - KERATITIS [None]
  - KERATOPATHY [None]
  - METASTASES TO CENTRAL NERVOUS SYSTEM [None]
  - METASTASES TO LYMPH NODES [None]
  - ORAL INTAKE REDUCED [None]
  - RADIATION INJURY [None]
  - TREATMENT NONCOMPLIANCE [None]
  - VOCAL CORD PARALYSIS [None]
